FAERS Safety Report 8383637 (Version 2)
Quarter: 2012Q4

REPORT INFORMATION
  Report Type: 
  Country: FR (occurrence: FR)
  Receive Date: 20120201
  Receipt Date: 20120906
  Transmission Date: 20130627
  Serious: Yes (Other)
  Sender: FDA-Public Use
  Company Number: FR-BAYER-2012-007758

PATIENT
  Age: 34 Year
  Sex: Female

DRUGS (2)
  1. MOXIFLOXACIN [Suspect]
     Indication: CHRONIC SINUSITIS
     Dosage: 400 mg, ONCE
     Route: 048
     Dates: start: 20110208
  2. PREDNISOLONE [Concomitant]
     Indication: CHRONIC SINUSITIS
     Route: 048

REACTIONS (8)
  - Urticaria [Recovered/Resolved]
  - Angioedema [Recovered/Resolved]
  - Anaphylactoid reaction [Recovered/Resolved]
  - Skin test negative [Unknown]
  - Dyspnoea [Unknown]
  - Pruritus [Unknown]
  - Blood immunoglobulin E increased [None]
  - Drug eruption [None]
